FAERS Safety Report 8195753-3 (Version None)
Quarter: 2012Q1

REPORT INFORMATION
  Report Type: 
  Country: None (occurrence: None)
  Receive Date: 20120308
  Receipt Date: 20120228
  Transmission Date: 20120608
  Serious: Yes (Hospitalization, Other)
  Sender: FDA-Public Use
  Company Number: FR-PFIZER INC-2012051904

PATIENT
  Age: 70 Year
  Sex: Male

DRUGS (12)
  1. EXELON [Suspect]
     Dosage: 4.5 MG, 2X/DAY
     Route: 048
     Dates: start: 20100329, end: 20111229
  2. RISPERDAL [Suspect]
     Indication: AGITATION
     Dosage: 0.5 MG, 2X/DAY
     Route: 048
  3. XANAX [Suspect]
     Indication: ANXIETY
     Dosage: 0.25 MG, AS NEEDED
     Route: 048
     Dates: end: 20111229
  4. EQUANIL [Suspect]
     Dosage: 500 MG, 1X/DAY
     Route: 048
     Dates: start: 20111128, end: 20120110
  5. ATARAX [Suspect]
     Dosage: 25 MG, 2X/DAY IN EVENING
     Route: 048
     Dates: start: 20111220
  6. MODOPAR [Suspect]
     Indication: EXTRAPYRAMIDAL DISORDER
     Dosage: 5 DF (100MG/25 MG), 1X/DAY
     Route: 048
  7. COZAAR [Suspect]
     Indication: HYPERTENSION
     Dosage: 100 MG, 1X/DAY
     Route: 048
  8. EQUANIL [Suspect]
     Indication: ANXIETY
     Dosage: 250 MG, 1X/DAY
     Route: 048
     Dates: start: 20100329, end: 20111127
  9. EQUANIL [Suspect]
     Dosage: 250 MG, 1X/DAY
     Dates: end: 20120110
  10. EXELON [Suspect]
     Indication: MEMORY IMPAIRMENT
     Dosage: UNK
     Route: 048
  11. ALFUZOSIN HCL [Suspect]
     Indication: BENIGN PROSTATIC HYPERPLASIA
     Dosage: 10 MG IN THE MORNING
     Route: 048
  12. RABEPRAZOLE SODIUM [Suspect]
     Dosage: 10 MG IN THE MORNING
     Route: 048

REACTIONS (5)
  - PULMONARY EMBOLISM [None]
  - MALAISE [None]
  - LUNG INFECTION [None]
  - CONFUSIONAL STATE [None]
  - DEHYDRATION [None]
